FAERS Safety Report 14800328 (Version 1)
Quarter: 2018Q2

REPORT INFORMATION
  Report Type: Report from Study
  Country: IT (occurrence: IT)
  Receive Date: 20180424
  Receipt Date: 20180424
  Transmission Date: 20180711
  Serious: Yes (Hospitalization)
  Sender: FDA-Public Use
  Company Number: IT-ROCHE-2109659

PATIENT
  Age: 70 Year
  Sex: Male

DRUGS (2)
  1. VEMURAFENIB. [Suspect]
     Active Substance: VEMURAFENIB
     Indication: HAIRY CELL LEUKAEMIA
     Dosage: DATE OF LAST DOSE PRIOR TO THE EVENT ONSET 28/MAR/2018
     Route: 048
     Dates: start: 20180327
  2. OBINUTUZUMAB. [Suspect]
     Active Substance: OBINUTUZUMAB
     Indication: HAIRY CELL LEUKAEMIA
     Dosage: 1000 MG DAY 1, 8, 15 CYCLE 1 AND 1000 MG DAY 1CYCLES 2 TO 6.?DATE OF LAST DOSE PRIOR TO THE EVENT ON
     Route: 042
     Dates: start: 20180327

REACTIONS (1)
  - Pancreatitis acute [Recovering/Resolving]

NARRATIVE: CASE EVENT DATE: 20180331
